FAERS Safety Report 16854887 (Version 1)
Quarter: 2019Q3

REPORT INFORMATION
  Report Type: Spontaneous
  Country: US (occurrence: US)
  Receive Date: 20190805
  Receipt Date: 20190805
  Transmission Date: 20191005
  Serious: Yes (Hospitalization)
  Sender: FDA-Public Use
  Company Number: None

PATIENT
  Sex: Female

DRUGS (2)
  1. RIVAROXABAN [Suspect]
     Active Substance: RIVAROXABAN
  2. CARBAMZEPINE [Suspect]
     Active Substance: CARBAMAZEPINE

REACTIONS (3)
  - Drug interaction [None]
  - Photosensitivity reaction [None]
  - Headache [None]
